FAERS Safety Report 23236536 (Version 3)
Quarter: 2024Q1

REPORT INFORMATION
  Report Type: Report from Study
  Country: MX (occurrence: MX)
  Receive Date: 20231128
  Receipt Date: 20240306
  Transmission Date: 20240410
  Serious: Yes (Hospitalization, Other)
  Sender: FDA-Public Use
  Company Number: MX-002147023-NVSC2023MX080569

PATIENT
  Sex: Male
  Weight: 90 kg

DRUGS (2)
  1. GILENYA [Suspect]
     Active Substance: FINGOLIMOD HYDROCHLORIDE
     Indication: Multiple sclerosis
     Dosage: 1 DOSAGE FORM (0.5 MG), QD (BY MOUTH)
     Route: 048
     Dates: start: 20201104
  2. LOSARTAN [Concomitant]
     Active Substance: LOSARTAN
     Indication: Hypertension
     Dosage: 1 DOSAGE FORM (50 MG), QD (3 YEARS AGO)
     Route: 048

REACTIONS (18)
  - Lipoma [Unknown]
  - Multiple sclerosis relapse [Recovered/Resolved]
  - Multiple sclerosis relapse [Unknown]
  - Fatigue [Recovered/Resolved]
  - Migraine [Recovered/Resolved]
  - Coordination abnormal [Recovered/Resolved]
  - Blindness [Recovering/Resolving]
  - Multiple sclerosis [Recovering/Resolving]
  - Condition aggravated [Recovering/Resolving]
  - Decreased immune responsiveness [Recovered/Resolved]
  - Head deformity [Unknown]
  - Pain in extremity [Recovered/Resolved]
  - Asthenia [Recovering/Resolving]
  - Hypoaesthesia [Not Recovered/Not Resolved]
  - Balance disorder [Recovering/Resolving]
  - Pain in extremity [Not Recovered/Not Resolved]
  - Infection [Unknown]
  - Limb discomfort [Not Recovered/Not Resolved]

NARRATIVE: CASE EVENT DATE: 20220101
